FAERS Safety Report 5402375-3 (Version None)
Quarter: 2007Q3

REPORT INFORMATION
  Report Type: 
  Country: None (occurrence: None)
  Receive Date: 20070730
  Receipt Date: 20070730
  Transmission Date: 20080115
  Serious: Yes (Hospitalization, Disabling)
  Sender: FDA-Public Use
  Company Number: None

PATIENT
  Age: 73 Year
  Sex: Male
  Weight: 83.9 kg

DRUGS (1)
  1. CYPHER STENT [Suspect]
     Indication: ANGINA PECTORIS
     Dates: start: 20070720, end: 20070720

REACTIONS (7)
  - BLOOD FIBRINOGEN INCREASED [None]
  - CHILLS [None]
  - FIBRIN D DIMER INCREASED [None]
  - LEUKOPENIA [None]
  - PYREXIA [None]
  - RASH [None]
  - THROMBOCYTOPENIA [None]
